FAERS Safety Report 7543019-4 (Version None)
Quarter: 2011Q2

REPORT INFORMATION
  Report Type: 
  Country: None (occurrence: None)
  Receive Date: 20110613
  Receipt Date: 20110608
  Transmission Date: 20111010
  Serious: Yes (Death)
  Sender: FDA-Public Use
  Company Number: PHHY2011US50211

PATIENT
  Sex: Female

DRUGS (6)
  1. PRAVASTATIN [Concomitant]
  2. GLEEVEC [Suspect]
     Dosage: 600 MG, QD
     Route: 048
  3. COZAAR [Concomitant]
  4. CARAFATE [Concomitant]
  5. NEXIUM [Concomitant]
  6. GLEEVEC [Suspect]
     Indication: MALIGNANT SOFT TISSUE NEOPLASM
     Dosage: 600 MG, QD
     Route: 048
     Dates: start: 20060101

REACTIONS (1)
  - DEATH [None]
